FAERS Safety Report 18194646 (Version 1)
Quarter: 2020Q3

REPORT INFORMATION
  Report Type: Not Available
  Country: AU (occurrence: AU)
  Receive Date: 20200825
  Receipt Date: 20200825
  Transmission Date: 20201103
  Serious: No
  Sender: FDA-Public Use
  Company Number: AU-LEXICON PHARMACEUTICALS, INC-20-1606-00673

PATIENT
  Sex: Female

DRUGS (1)
  1. XERMELO [Suspect]
     Active Substance: TELOTRISTAT ETHYL
     Indication: CARCINOID SYNDROME
     Dosage: NOT REPORTED
     Route: 065

REACTIONS (1)
  - Drug ineffective [Unknown]
